FAERS Safety Report 8069702-2 (Version None)
Quarter: 2012Q1

REPORT INFORMATION
  Report Type: 
  Country: None (occurrence: None)
  Receive Date: 20120125
  Receipt Date: 20110907
  Transmission Date: 20120608
  Serious: No
  Sender: FDA-Public Use
  Company Number: US-PFIZER INC-2011US-49956

PATIENT
  Sex: Female

DRUGS (8)
  1. VERAPAMIL HCL [Suspect]
     Dosage: UNK
     Route: 065
  2. ASPIRIN [Suspect]
     Dosage: UNK
     Route: 065
  3. CODEINE [Suspect]
     Dosage: UNK
     Route: 065
  4. PRAVASTATIN [Suspect]
     Dosage: UNK
     Route: 065
  5. TEQUIN [Suspect]
     Dosage: UNK
     Route: 065
  6. CYCLOBENZAPRINE HCL [Suspect]
     Dosage: UNK
     Route: 065
  7. VICODIN [Suspect]
     Dosage: UNK
     Route: 065
  8. ERYTHROMYCIN [Suspect]
     Dosage: UNK
     Route: 065

REACTIONS (2)
  - VOMITING [None]
  - NAUSEA [None]
